FAERS Safety Report 23790880 (Version 2)
Quarter: 2024Q2

REPORT INFORMATION
  Report Type: Spontaneous
  Country: PT (occurrence: PT)
  Receive Date: 20240427
  Receipt Date: 20240511
  Transmission Date: 20240716
  Serious: Yes (Death, Life-Threatening, Hospitalization, Other)
  Sender: FDA-Public Use
  Company Number: None

PATIENT
  Age: 62 Year
  Sex: Female

DRUGS (1)
  1. PREDNISOLONE [Suspect]
     Active Substance: PREDNISOLONE
     Indication: Arthritis
     Dosage: 5 MILLIGRAM, QD
     Route: 065

REACTIONS (8)
  - Strongyloidiasis [Fatal]
  - Respiratory failure [Fatal]
  - Pulmonary alveolar haemorrhage [Fatal]
  - Oesophageal candidiasis [Fatal]
  - Septic shock [Fatal]
  - Large intestinal ulcer [Fatal]
  - Bacterial infection [Fatal]
  - Hypotension [Unknown]
